FAERS Safety Report 21732153 (Version 1)
Quarter: 2022Q4

REPORT INFORMATION
  Report Type: Spontaneous
  Country: US (occurrence: None)
  Receive Date: 20221214
  Receipt Date: 20221214
  Transmission Date: 20230113
  Serious: Yes (Hospitalization)
  Sender: FDA-Public Use
  Company Number: None

PATIENT
  Age: 67 Year
  Sex: Male

DRUGS (1)
  1. ABIRATERONE [Suspect]
     Active Substance: ABIRATERONE
     Dosage: FREQUENCY : DAILY;?
     Route: 048

REACTIONS (9)
  - Oral disorder [None]
  - Dysphagia [None]
  - Eating disorder [None]
  - Skin exfoliation [None]
  - Oedema peripheral [None]
  - Dysuria [None]
  - Urinary tract infection [None]
  - Constipation [None]
  - Alopecia [None]

NARRATIVE: CASE EVENT DATE: 20221214
